FAERS Safety Report 10035820 (Version 2)
Quarter: 2014Q2

REPORT INFORMATION
  Report Type: Spontaneous
  Country: JP (occurrence: JP)
  Receive Date: 20140325
  Receipt Date: 20140408
  Transmission Date: 20141212
  Serious: Yes (Other)
  Sender: FDA-Public Use
  Company Number: JP-TEVA-470156ISR

PATIENT
  Age: 61 Year
  Sex: Female

DRUGS (3)
  1. LEVOLEUCOVORIN CALCIUM [Suspect]
  2. 5-FU (FLUOROURACIL) [Suspect]
     Indication: OESOPHAGEAL CARCINOMA
  3. CISPLATIN [Suspect]
     Indication: OESOPHAGEAL CARCINOMA

REACTIONS (1)
  - Stomatitis [Unknown]
